FAERS Safety Report 4817987-5 (Version None)
Quarter: 2005Q4

REPORT INFORMATION
  Report Type: 
  Country: None (occurrence: None)
  Receive Date: 20051102
  Receipt Date: 20051021
  Transmission Date: 20060501
  Serious: Yes (Other)
  Sender: FDA-Public Use
  Company Number: US-BRISTOL-MYERS SQUIBB COMPANY-13152582

PATIENT
  Age: 55 Year
  Sex: Male
  Weight: 81 kg

DRUGS (14)
  1. TAXOL [Suspect]
     Indication: TONSIL CANCER
     Route: 042
     Dates: start: 20050921
  2. CARBOPLATIN [Suspect]
     Indication: TONSIL CANCER
  3. ATIVAN [Concomitant]
     Indication: PREMEDICATION
  4. DECADRON SRC [Concomitant]
     Indication: PREMEDICATION
  5. ALOXI [Concomitant]
     Indication: PREMEDICATION
  6. BENADRYL [Concomitant]
     Indication: PREMEDICATION
  7. PEPCID [Concomitant]
     Indication: PREMEDICATION
  8. WELLBUTRIN [Concomitant]
  9. LEXAPRO [Concomitant]
  10. PROTOPIC [Concomitant]
  11. VITAMIN CAP [Concomitant]
  12. DURAGESIC-100 [Concomitant]
  13. OXYCODONE [Concomitant]
  14. RADIATION THERAPY [Concomitant]

REACTIONS (2)
  - FEBRILE NEUTROPENIA [None]
  - HEPATITIS B [None]
